FAERS Safety Report 14029813 (Version 1)
Quarter: 2017Q3

REPORT INFORMATION
  Report Type: Spontaneous
  Country: US (occurrence: US)
  Receive Date: 20170930
  Receipt Date: 20170930
  Transmission Date: 20171128
  Serious: No
  Sender: FDA-Public Use
  Company Number: US-SA-2017SA109322

PATIENT
  Age: 51 Year
  Sex: Female

DRUGS (1)
  1. AUBAGIO [Suspect]
     Active Substance: TERIFLUNOMIDE
     Indication: MULTIPLE SCLEROSIS
     Route: 048
     Dates: start: 20170325

REACTIONS (5)
  - Skin irritation [Unknown]
  - Erythema [Unknown]
  - Periorbital haemorrhage [Unknown]
  - Amnesia [Unknown]
  - Pruritus [Unknown]

NARRATIVE: CASE EVENT DATE: 201705
